FAERS Safety Report 12281202 (Version 1)
Quarter: 2016Q2

REPORT INFORMATION
  Report Type: Spontaneous
  Country: US (occurrence: None)
  Receive Date: 20160418
  Receipt Date: 20160418
  Transmission Date: 20160815
  Serious: No
  Sender: FDA-Public Use
  Company Number: None

PATIENT
  Age: 56 Year
  Sex: Male
  Weight: 89.1 kg

DRUGS (1)
  1. CATHFLO ACTIVASE [Suspect]
     Active Substance: ALTEPLASE
     Indication: ARTERIAL OCCLUSIVE DISEASE
     Route: 040
     Dates: start: 20160406

REACTIONS (4)
  - Infusion site erythema [None]
  - Infusion site swelling [None]
  - Product contamination [None]
  - Device material issue [None]

NARRATIVE: CASE EVENT DATE: 20160406
